FAERS Safety Report 25826288 (Version 1)
Quarter: 2025Q3

REPORT INFORMATION
  Report Type: Spontaneous
  Country: TH (occurrence: TH)
  Receive Date: 20250919
  Receipt Date: 20250919
  Transmission Date: 20251020
  Serious: No
  Sender: ABBVIE
  Company Number: TH-ABBVIE-6266073

PATIENT

DRUGS (2)
  1. OZURDEX [Suspect]
     Active Substance: DEXAMETHASONE
     Indication: Product used for unknown indication
     Route: 050
  2. OZURDEX [Suspect]
     Active Substance: DEXAMETHASONE
     Route: 050

REACTIONS (1)
  - No adverse event [Unknown]
